FAERS Safety Report 10275684 (Version 1)
Quarter: 2014Q3

REPORT INFORMATION
  Report Type: Spontaneous
  Country: US (occurrence: None)
  Receive Date: 20140701
  Receipt Date: 20140701
  Transmission Date: 20150326
  Serious: Yes (Life-Threatening, Hospitalization)
  Sender: FDA-Public Use
  Company Number: None

PATIENT
  Age: 71 Year
  Sex: Female
  Weight: 63.5 kg

DRUGS (1)
  1. RIVAROXABAN [Suspect]
     Active Substance: RIVAROXABAN
     Indication: ATRIAL FIBRILLATION
     Dosage: MONTHS ?1 TABLET?QD?ORAL
     Route: 048

REACTIONS (6)
  - Respiration abnormal [None]
  - Gaze palsy [None]
  - Unresponsive to stimuli [None]
  - Brain oedema [None]
  - Intraventricular haemorrhage [None]
  - Hydrocephalus [None]

NARRATIVE: CASE EVENT DATE: 20140623
